FAERS Safety Report 10857432 (Version 1)
Quarter: 2015Q1

REPORT INFORMATION
  Report Type: Spontaneous
  Country: US (occurrence: US)
  Receive Date: 20150223
  Receipt Date: 20150223
  Transmission Date: 20150721
  Serious: Yes (Other)
  Sender: FDA-Public Use
  Company Number: CHPA2015US001716

PATIENT
  Age: 84 Year
  Sex: Male

DRUGS (1)
  1. TRANSDERM SCOP [Suspect]
     Active Substance: SCOPOLAMINE
     Indication: INCREASED UPPER AIRWAY SECRETION
     Dosage: UNK
     Route: 062
     Dates: start: 20150107, end: 20150108

REACTIONS (5)
  - Abnormal behaviour [Recovering/Resolving]
  - Bronchitis [Recovering/Resolving]
  - Cough [Recovering/Resolving]
  - Hallucination [Recovered/Resolved]
  - Pyrexia [Unknown]
